FAERS Safety Report 13290875 (Version 1)
Quarter: 2017Q1

REPORT INFORMATION
  Report Type: Report from Study
  Country: None (occurrence: HU)
  Receive Date: 20170303
  Receipt Date: 20170303
  Transmission Date: 20170428
  Serious: Yes (Other)
  Sender: FDA-Public Use
  Company Number: HU-BIOVITRUM-2011HU0386

PATIENT
  Sex: Female
  Weight: 38 kg

DRUGS (4)
  1. ORFADIN [Suspect]
     Active Substance: NITISINONE
     Dates: start: 20111128, end: 20120924
  2. ORFADIN [Suspect]
     Active Substance: NITISINONE
     Indication: TYROSINAEMIA
     Dates: start: 20040610, end: 20111127
  3. ORFADIN [Suspect]
     Active Substance: NITISINONE
     Dates: start: 20120925, end: 20160413
  4. ORFADIN [Suspect]
     Active Substance: NITISINONE
     Dates: start: 20160414

REACTIONS (5)
  - Abnormal behaviour [Unknown]
  - Attention deficit/hyperactivity disorder [Unknown]
  - Amino acid level increased [Unknown]
  - Succinylacetone increased [Unknown]
  - Amino acid level decreased [Unknown]

NARRATIVE: CASE EVENT DATE: 2016
